FAERS Safety Report 21856241 (Version 1)
Quarter: 2023Q1

REPORT INFORMATION
  Report Type: Spontaneous
  Country: US (occurrence: US)
  Receive Date: 20230112
  Receipt Date: 20230112
  Transmission Date: 20230417
  Serious: No
  Sender: FDA-Public Use
  Company Number: US-SA-SAC20230112000036

PATIENT
  Age: 72 Year
  Sex: Male

DRUGS (2)
  1. KEVZARA [Suspect]
     Active Substance: SARILUMAB
     Indication: Rheumatoid arthritis
     Dosage: 200 MG, QOW
     Route: 058
     Dates: start: 20210512
  2. KEVZARA [Suspect]
     Active Substance: SARILUMAB
     Dosage: 200 MG
     Route: 058

REACTIONS (1)
  - Pain [Unknown]

NARRATIVE: CASE EVENT DATE: 20230106
